FAERS Safety Report 16027888 (Version 1)
Quarter: 2019Q1

REPORT INFORMATION
  Report Type: Spontaneous
  Country: US (occurrence: US)
  Receive Date: 20190304
  Receipt Date: 20190304
  Transmission Date: 20190418
  Serious: No
  Sender: FDA-Public Use
  Company Number: US-IMPAX LABORATORIES, LLC-2018-IPXL-01003

PATIENT
  Age: 60 Year
  Sex: Female
  Weight: 95 kg

DRUGS (4)
  1. RASAGILINE. [Concomitant]
     Active Substance: RASAGILINE
     Dosage: 1 MG, IN THE MORNING
     Route: 065
     Dates: start: 20170422
  2. RYTARY [Suspect]
     Active Substance: CARBIDOPA\LEVODOPA
     Indication: PARKINSON^S DISEASE
     Dosage: 36.25/145 MG, UNK
     Route: 048
     Dates: start: 20170211
  3. RASAGILINE. [Concomitant]
     Active Substance: RASAGILINE
     Indication: PARKINSON^S DISEASE
     Dosage: 1 MG, UNK
     Route: 065
     Dates: start: 20120919
  4. AZILECT [Concomitant]
     Active Substance: RASAGILINE MESYLATE
     Indication: PRODUCT USED FOR UNKNOWN INDICATION
     Dosage: 1 DF, IN MORNING
     Route: 065
     Dates: start: 20120919

REACTIONS (3)
  - Somnolence [Not Recovered/Not Resolved]
  - Product use complaint [Unknown]
  - Insomnia [Not Recovered/Not Resolved]

NARRATIVE: CASE EVENT DATE: 20171123
